FAERS Safety Report 13067984 (Version 1)
Quarter: 2016Q4

REPORT INFORMATION
  Report Type: Spontaneous
  Country: US (occurrence: US)
  Receive Date: 20161227
  Receipt Date: 20161227
  Transmission Date: 20170207
  Serious: No
  Sender: FDA-Public Use
  Company Number: None

PATIENT
  Age: 41 Year
  Sex: Female

DRUGS (1)
  1. HUMIRA [Suspect]
     Active Substance: ADALIMUMAB
     Indication: HIDRADENITIS
     Route: 058
     Dates: start: 20161129

REACTIONS (4)
  - Dyspnoea [None]
  - Nausea [None]
  - Chest discomfort [None]
  - Insomnia [None]

NARRATIVE: CASE EVENT DATE: 20161222
